FAERS Safety Report 8384367-8 (Version None)
Quarter: 2012Q2

REPORT INFORMATION
  Report Type: 
  Country: None (occurrence: None)
  Receive Date: 20120524
  Receipt Date: 20120522
  Transmission Date: 20120825
  Serious: Yes (Death)
  Sender: FDA-Public Use
  Company Number: US-PURDUE-USA-2012-0087463

PATIENT
  Age: 23 Year
  Sex: Male

DRUGS (1)
  1. OXYCODONE HCL [Suspect]
     Indication: INJURY

REACTIONS (1)
  - DEATH [None]
